FAERS Safety Report 5431296-5 (Version None)
Quarter: 2007Q3

REPORT INFORMATION
  Report Type: 
  Country: None (occurrence: None)
  Receive Date: 20070830
  Receipt Date: 20070828
  Transmission Date: 20080115
  Serious: Yes (Death)
  Sender: FDA-Public Use
  Company Number: HQWYE974509JUL07

PATIENT
  Sex: Female
  Weight: 55.84 kg

DRUGS (5)
  1. RAPAMUNE [Suspect]
     Indication: LIVER TRANSPLANT
     Route: 048
     Dates: start: 20060412
  2. PROGRAF [Concomitant]
  3. ACTIGALL [Concomitant]
  4. VALCYTE [Concomitant]
     Dosage: 450 EVERY 48 HOURS
  5. NEXIUM [Concomitant]

REACTIONS (1)
  - MULTI-ORGAN FAILURE [None]
